FAERS Safety Report 4676417-7 (Version None)
Quarter: 2005Q2

REPORT INFORMATION
  Report Type: 
  Country: None (occurrence: None)
  Receive Date: 20050527
  Receipt Date: 20020103
  Transmission Date: 20051028
  Serious: Yes (Death, Hospitalization, Disabling, Other)
  Sender: FDA-Public Use
  Company Number: US-MERCK-0201USA00182

PATIENT
  Age: 63 Year
  Sex: Male

DRUGS (42)
  1. ZOCOR [Suspect]
     Indication: HYPERCHOLESTEROLAEMIA
     Route: 048
     Dates: start: 19930802
  2. ZOCOR [Suspect]
     Route: 048
     Dates: start: 19930913, end: 20011101
  3. ECOTRIN [Concomitant]
     Route: 048
     Dates: start: 19940401
  4. ECOTRIN [Concomitant]
     Route: 065
     Dates: end: 19940401
  5. VERAPAMIL [Concomitant]
     Route: 048
  6. XANAX [Concomitant]
     Route: 048
     Dates: start: 19940101
  7. HUMULIN N [Concomitant]
     Route: 065
     Dates: start: 19840701
  8. HUMULIN R [Concomitant]
     Route: 065
  9. PROZAC [Concomitant]
     Route: 048
     Dates: end: 19970306
  10. DOXEPIN [Concomitant]
     Route: 048
     Dates: start: 19890101
  11. IMDUR [Concomitant]
     Route: 048
     Dates: start: 19961216
  12. NEURONTIN [Concomitant]
     Route: 048
  13. CLONAZEPAM [Concomitant]
     Route: 048
  14. PRILOSEC [Concomitant]
     Route: 065
     Dates: start: 19890101
  15. NITRO-DUR [Concomitant]
     Route: 061
     Dates: start: 19840401
  16. CARDIZEM [Concomitant]
     Route: 065
     Dates: start: 19850410
  17. DARVOCET-N 100 [Concomitant]
     Indication: CHEST WALL PAIN
     Route: 065
     Dates: start: 19950331
  18. DYAZIDE [Concomitant]
     Indication: SWELLING
     Route: 065
     Dates: start: 19950331
  19. AUGMENTIN '125' [Concomitant]
     Indication: WOUND
     Route: 065
  20. KEFLEX [Concomitant]
     Indication: UPPER RESPIRATORY TRACT INFECTION
     Route: 065
     Dates: start: 19951016
  21. KEFLEX [Concomitant]
     Route: 065
     Dates: start: 19970326
  22. KEFLEX [Concomitant]
     Route: 065
     Dates: start: 19971204
  23. ACTIFED [Concomitant]
     Route: 065
     Dates: start: 19951016
  24. VASOTEC [Concomitant]
     Indication: OEDEMA
     Route: 048
  25. RISPERDAL [Concomitant]
     Indication: ANXIETY
     Route: 065
     Dates: start: 19970226
  26. RISPERDAL [Concomitant]
     Route: 065
     Dates: start: 19970301
  27. AMBIEN [Concomitant]
     Indication: SLEEP DISORDER
     Route: 065
     Dates: start: 19981105, end: 19981109
  28. PREDNISONE [Concomitant]
     Indication: CHRONIC OBSTRUCTIVE PULMONARY DISEASE
     Route: 065
     Dates: start: 19990511, end: 19990517
  29. ALBUTEROL [Concomitant]
     Indication: CHRONIC OBSTRUCTIVE PULMONARY DISEASE
     Route: 065
     Dates: start: 19990407
  30. SEREVENT [Concomitant]
     Route: 065
     Dates: start: 19990511
  31. FLOVENT [Concomitant]
     Route: 065
     Dates: start: 19990913
  32. TYLENOL W/ CODEINE NO. 3 [Concomitant]
     Route: 065
  33. WELLBUTRIN [Concomitant]
     Route: 065
  34. GLUCOPHAGE [Concomitant]
     Route: 065
  35. NORVASC [Concomitant]
     Route: 065
     Dates: start: 19961216
  36. NICODERM [Concomitant]
     Route: 061
     Dates: start: 20000314, end: 20000412
  37. NICODERM [Concomitant]
     Route: 065
     Dates: start: 20000413, end: 20000512
  38. NICODERM [Concomitant]
     Route: 065
     Dates: start: 20000513, end: 20000611
  39. PLAVIX [Concomitant]
     Route: 065
     Dates: start: 20000314, end: 20000328
  40. INSULIN [Concomitant]
     Route: 065
     Dates: start: 20030201
  41. INSULIN, BIPHASIC ISOPHANE [INJECTION] [Concomitant]
     Route: 065
     Dates: end: 20030201
  42. TYLENOL (CAPLET) [Concomitant]
     Route: 065
     Dates: start: 19990101, end: 20010101

REACTIONS (61)
  - ABDOMINAL DISTENSION [None]
  - ABDOMINAL PAIN [None]
  - AMMONIA INCREASED [None]
  - ANGINA PECTORIS [None]
  - ANGINA UNSTABLE [None]
  - ANXIETY [None]
  - ASCITES [None]
  - ATRIOVENTRICULAR BLOCK COMPLETE [None]
  - BILIRUBIN CONJUGATED INCREASED [None]
  - BLOOD ALBUMIN DECREASED [None]
  - BLOOD BILIRUBIN INCREASED [None]
  - BLOOD CREATINE PHOSPHOKINASE INCREASED [None]
  - BRONCHITIS [None]
  - CARDIAC DISORDER [None]
  - CEREBROVASCULAR ACCIDENT [None]
  - CHEST PAIN [None]
  - CHOLECYSTITIS [None]
  - CHOLELITHIASIS [None]
  - CHROMATURIA [None]
  - CONFUSIONAL STATE [None]
  - CONSTIPATION [None]
  - CRYPTOGENIC CIRRHOSIS [None]
  - DEPRESSION [None]
  - DIARRHOEA [None]
  - DISEASE PROGRESSION [None]
  - DISORIENTATION [None]
  - DIVERTICULUM [None]
  - DYSPNOEA [None]
  - ELECTROCARDIOGRAM ABNORMAL [None]
  - ENCEPHALOPATHY [None]
  - FAILURE TO THRIVE [None]
  - FALL [None]
  - FATIGUE [None]
  - HAEMOPTYSIS [None]
  - HALLUCINATION [None]
  - HEADACHE [None]
  - HEPATIC ENCEPHALOPATHY [None]
  - HEPATIC FAILURE [None]
  - HEPATITIS ACUTE [None]
  - HYPONATRAEMIA [None]
  - INSOMNIA [None]
  - INTERNATIONAL NORMALISED RATIO INCREASED [None]
  - IRON DEFICIENCY ANAEMIA [None]
  - JAUNDICE [None]
  - MALABSORPTION [None]
  - MALAISE [None]
  - MUSCLE SPASMS [None]
  - MYALGIA [None]
  - MYOPATHY [None]
  - NAUSEA [None]
  - OESOPHAGITIS [None]
  - PENILE HAEMORRHAGE [None]
  - PHIMOSIS [None]
  - RED BLOOD CELL SEDIMENTATION RATE INCREASED [None]
  - REFLUX OESOPHAGITIS [None]
  - SPLENOMEGALY [None]
  - URINARY RETENTION [None]
  - VASCULAR GRAFT OCCLUSION [None]
  - VENTRICULAR EXTRASYSTOLES [None]
  - WEIGHT DECREASED [None]
  - WHEEZING [None]
